FAERS Safety Report 7769735-7 (Version None)
Quarter: 2011Q3

REPORT INFORMATION
  Report Type: 
  Country: None (occurrence: None)
  Receive Date: 20110922
  Receipt Date: 20110413
  Transmission Date: 20111222
  Serious: Yes (Other)
  Sender: FDA-Public Use
  Company Number: US-ASTRAZENECA-2011SE21707

PATIENT
  Age: 60 Year
  Sex: Male

DRUGS (9)
  1. ZYPREXA [Suspect]
     Route: 065
  2. MIRTAZAPINE [Suspect]
     Route: 065
  3. XANAX [Suspect]
     Route: 048
  4. EFFEXOR [Concomitant]
  5. ZYPREXA [Suspect]
     Dosage: 10MG AT 6 P.M, THEN AN EXTRA DOSE OF 10 MG AT 10 P.M.
     Route: 065
  6. MIRTAZAPINE [Suspect]
     Dosage: 45MG AT 6 P.M, THEN AN EXTRA DOSE OF 75MG AT 10 P.M.
     Route: 065
  7. SEROQUEL [Suspect]
     Dosage: 300MG AT 6 P.M, THEN AN EXTRA DOSE OF 300MG AT 10 P.M.
     Route: 048
  8. SEROQUEL [Suspect]
     Route: 048
  9. XANAX [Suspect]
     Dosage: 1.5MG AT 6 P.M, THEN AN EXTRA DOSE OF 1.5MG
     Route: 048

REACTIONS (3)
  - INSOMNIA [None]
  - INCORRECT DOSE ADMINISTERED [None]
  - SUICIDAL IDEATION [None]
